FAERS Safety Report 6382722-9 (Version None)
Quarter: 2009Q3

REPORT INFORMATION
  Report Type: 
  Country: None (occurrence: None)
  Receive Date: 20090930
  Receipt Date: 20090921
  Transmission Date: 20100115
  Serious: Yes (Hospitalization)
  Sender: FDA-Public Use
  Company Number: ES-TEVA-210042ISR

PATIENT
  Age: 74 Year
  Sex: Male

DRUGS (8)
  1. CIPROFLOXACIN HYDROCHLORIDE [Suspect]
  2. FLUOXETINE [Interacting]
  3. CITALOPRAM HYDROBROMIDE [Interacting]
  4. REBOXETINE [Interacting]
  5. ACETYLSALICYLIC ACID [Concomitant]
  6. ENALAPRIL MALEATE [Concomitant]
  7. SULPIRIDE [Concomitant]
  8. DIAZEPAM [Concomitant]

REACTIONS (2)
  - DRUG INTERACTION [None]
  - SEROTONIN SYNDROME [None]
